FAERS Safety Report 5606626-1 (Version None)
Quarter: 2008Q1

REPORT INFORMATION
  Report Type: 
  Country: None (occurrence: None)
  Receive Date: 20080129
  Receipt Date: 20080124
  Transmission Date: 20080703
  Serious: Yes (Hospitalization)
  Sender: FDA-Public Use
  Company Number: JP-AVENTIS-200810094JP

PATIENT
  Age: 75 Year
  Sex: Male

DRUGS (2)
  1. TAXOTERE [Suspect]
     Route: 041
  2. ESTRACYT                           /00327002/ [Concomitant]

REACTIONS (2)
  - CARDIAC FAILURE [None]
  - FLUID RETENTION [None]
